FAERS Safety Report 5130242-1 (Version None)
Quarter: 2006Q4

REPORT INFORMATION
  Report Type: 
  Country: None (occurrence: None)
  Receive Date: 20061013
  Receipt Date: 20060928
  Transmission Date: 20070319
  Serious: Yes (Hospitalization)
  Sender: FDA-Public Use
  Company Number: REM_00258_2006

PATIENT
  Age: 59 Year
  Sex: Female

DRUGS (9)
  1. REMODULIN [Suspect]
     Indication: PULMONARY HYPERTENSION
     Dosage: 70 NG/KG/MIN CONTINUOUS IV
     Route: 042
     Dates: start: 20040101
  2. DIGOXIN [Concomitant]
  3. DIAZIDE /00413701/ [Concomitant]
  4. TRACLEER [Concomitant]
  5. ZOCOR [Concomitant]
  6. MULTI-VITAMIN [Concomitant]
  7. CALCIUM SUPPLEMENT [Concomitant]
  8. XANAX [Concomitant]
  9. COUMADIN [Concomitant]

REACTIONS (5)
  - BACTERAEMIA [None]
  - CENTRAL LINE INFECTION [None]
  - ENTEROBACTER INFECTION [None]
  - ENTEROCOCCAL INFECTION [None]
  - UPPER RESPIRATORY TRACT INFECTION [None]
